FAERS Safety Report 9659380 (Version 4)
Quarter: 2014Q1

REPORT INFORMATION
  Report Type: Spontaneous
  Country: PE (occurrence: PE)
  Receive Date: 20131031
  Receipt Date: 20140107
  Transmission Date: 20141002
  Serious: Yes (Death, Life-Threatening, Hospitalization, Other)
  Sender: FDA-Public Use
  Company Number: PE-SHIRE-ALL1-2013-07474

PATIENT
  Age: 15 Year
  Sex: Male
  Weight: 38.7 kg

DRUGS (6)
  1. ELAPRASE [Suspect]
     Indication: MUCOPOLYSACCHARIDOSIS II
     Dosage: 18 MG, 1X/WEEK
     Route: 041
     Dates: start: 20130915, end: 2013
  2. ELAPRASE [Suspect]
     Dosage: UNK UNK, UNKNOWN
     Route: 041
     Dates: start: 2004, end: 201307
  3. RISPERIDONE [Concomitant]
     Indication: PSYCHOMOTOR HYPERACTIVITY
     Dosage: UNK UNK, UNKNOWN
     Route: 048
  4. LAMOTRIGINE [Concomitant]
     Indication: CONVULSION
     Dosage: UNK UNK, UNKNOWN
     Route: 048
  5. IPRATROPIUM BROMIDE W/SALBUTAMOL [Concomitant]
     Indication: BRONCHOSPASM
     Dosage: UNK UNK, UNKNOWN
     Route: 055
  6. PREDNISONE [Concomitant]
     Indication: BRONCHOSPASM
     Dosage: UNK UNK, UNKNOWN
     Route: 048

REACTIONS (13)
  - Pneumonia [Fatal]
  - Respiratory failure [Fatal]
  - Influenza [Unknown]
  - Respiratory disorder [Not Recovered/Not Resolved]
  - Pseudomonas infection [Not Recovered/Not Resolved]
  - Pyrexia [Unknown]
  - Increased upper airway secretion [Unknown]
  - Oxygen saturation decreased [Unknown]
  - Anaemia [Unknown]
  - Respiratory tract infection [Unknown]
  - Hypothermia [Recovered/Resolved]
  - Bradycardia [Unknown]
  - Drug dose omission [Not Recovered/Not Resolved]
